FAERS Safety Report 17845842 (Version 2)
Quarter: 2020Q2

REPORT INFORMATION
  Report Type: Spontaneous
  Country: CH (occurrence: CH)
  Receive Date: 20200601
  Receipt Date: 20200616
  Transmission Date: 20200714
  Serious: Yes (Disabling)
  Sender: FDA-Public Use
  Company Number: NVSC2020CH120009

PATIENT
  Age: 52 Year
  Sex: Female

DRUGS (2)
  1. COSENTYX [Suspect]
     Active Substance: SECUKINUMAB
     Indication: GUTTATE PSORIASIS
  2. COSENTYX [Suspect]
     Active Substance: SECUKINUMAB
     Indication: PSORIASIS
     Dosage: UNK UKN, Q2W
     Route: 065
     Dates: start: 201804, end: 202001

REACTIONS (10)
  - Tympanic membrane perforation [Recovered/Resolved with Sequelae]
  - Otorrhoea [Not Recovered/Not Resolved]
  - Nasal pruritus [Recovered/Resolved with Sequelae]
  - Otitis media [Not Recovered/Not Resolved]
  - Deafness unilateral [Not Recovered/Not Resolved]
  - Tinnitus [Not Recovered/Not Resolved]
  - Adenoidal hypertrophy [Recovered/Resolved with Sequelae]
  - Dyspnoea [Recovered/Resolved with Sequelae]
  - Sinusitis [Recovered/Resolved with Sequelae]
  - Rhinorrhoea [Recovered/Resolved with Sequelae]

NARRATIVE: CASE EVENT DATE: 202001
